FAERS Safety Report 15213015 (Version 1)
Quarter: 2018Q3

REPORT INFORMATION
  Report Type: Spontaneous
  Country: US (occurrence: US)
  Receive Date: 20180730
  Receipt Date: 20180730
  Transmission Date: 20181010
  Serious: No
  Sender: FDA-Public Use
  Company Number: US-GLENMARK PHARMACEUTICALS-2018GMK035879

PATIENT

DRUGS (1)
  1. CLOTRIMAZOLE/BETAMETHASONE DIPROPIONATE CREAM USP [Suspect]
     Active Substance: BETAMETHASONE DIPROPIONATE\CLOTRIMAZOLE
     Indication: FUNGAL SKIN INFECTION
     Dosage: UNK
     Route: 061

REACTIONS (3)
  - No adverse event [Unknown]
  - Wrong technique in product usage process [Unknown]
  - Accidental exposure to product [Unknown]

NARRATIVE: CASE EVENT DATE: 20180528
